FAERS Safety Report 9552356 (Version 2)
Quarter: 2013Q3

REPORT INFORMATION
  Report Type: Spontaneous
  Country: GB (occurrence: GB)
  Receive Date: 20130925
  Receipt Date: 20130927
  Transmission Date: 20140515
  Serious: Yes (Other)
  Sender: FDA-Public Use
  Company Number: GB-ASTELLAS-2013EU008132

PATIENT
  Sex: Male

DRUGS (2)
  1. VESICARE [Suspect]
     Indication: NOCTURIA
     Dosage: UNK
     Route: 065
  2. VESICARE [Suspect]
     Indication: MICTURITION URGENCY

REACTIONS (1)
  - Aggression [Recovering/Resolving]
